FAERS Safety Report 19518272 (Version 1)
Quarter: 2021Q3

REPORT INFORMATION
  Report Type: Report from Study
  Country: BR (occurrence: BR)
  Receive Date: 20210712
  Receipt Date: 20210712
  Transmission Date: 20211014
  Serious: Yes (Other)
  Sender: FDA-Public Use
  Company Number: NVSC2021BR120239

PATIENT
  Age: 45 Year
  Sex: Female
  Weight: 71 kg

DRUGS (5)
  1. COSENTYX [Suspect]
     Active Substance: SECUKINUMAB
     Dosage: 2 DF, QMO
     Route: 058
     Dates: start: 202103, end: 202103
  2. COSENTYX [Suspect]
     Active Substance: SECUKINUMAB
     Dosage: 300 MG
     Route: 065
     Dates: start: 20191010
  3. COSENTYX [Suspect]
     Active Substance: SECUKINUMAB
     Dosage: 2 DF, QMO
     Route: 058
     Dates: start: 202105, end: 202105
  4. COSENTYX [Suspect]
     Active Substance: SECUKINUMAB
     Dosage: 2 DF, QMO
     Route: 058
     Dates: start: 202104, end: 202104
  5. COSENTYX [Suspect]
     Active Substance: SECUKINUMAB
     Indication: PSORIASIS
     Dosage: 2 DF, QMO (2 SYRINGES PER MONTH)
     Route: 058
     Dates: start: 201909

REACTIONS (14)
  - Pruritus [Not Recovered/Not Resolved]
  - Apoptosis [Unknown]
  - COVID-19 [Recovered/Resolved]
  - Headache [Unknown]
  - Acne [Recovering/Resolving]
  - Dyspnoea [Unknown]
  - Fatigue [Unknown]
  - Collagen disorder [Unknown]
  - Melanoderma [Unknown]
  - Acanthosis [Unknown]
  - Cough [Not Recovered/Not Resolved]
  - Dermatitis [Unknown]
  - Nasopharyngitis [Unknown]
  - Skin discolouration [Unknown]

NARRATIVE: CASE EVENT DATE: 202003
